FAERS Safety Report 21325021 (Version 1)
Quarter: 2022Q3

REPORT INFORMATION
  Report Type: Spontaneous
  Country: US (occurrence: US)
  Receive Date: 20220912
  Receipt Date: 20220912
  Transmission Date: 20221027
  Serious: No
  Sender: FDA-Public Use
  Company Number: US-PFIZER INC-202201147416

PATIENT
  Age: 47 Year
  Sex: Female
  Weight: 72.562 kg

DRUGS (1)
  1. ESTRADIOL CYPIONATE [Suspect]
     Active Substance: ESTRADIOL CYPIONATE
     Indication: Menopause
     Dosage: 0.04 3 TIMES A WEEK
     Dates: start: 2017

REACTIONS (4)
  - Menopausal symptoms [Recovering/Resolving]
  - Vomiting [Recovering/Resolving]
  - Illness [Recovering/Resolving]
  - Off label use [Unknown]

NARRATIVE: CASE EVENT DATE: 20170101
